FAERS Safety Report 6577601-8 (Version None)
Quarter: 2010Q1

REPORT INFORMATION
  Report Type: 
  Country: None (occurrence: None)
  Receive Date: 20100211
  Receipt Date: 20100128
  Transmission Date: 20100710
  Serious: Yes (Death, Other)
  Sender: FDA-Public Use
  Company Number: PHHY2010US06582

PATIENT
  Age: 31 Year
  Sex: Male

DRUGS (3)
  1. CYCLOSPORINE [Suspect]
     Indication: APLASTIC ANAEMIA
     Dosage: UNK
  2. ANTI-THYMOCYTE GLOBULIN NOS [Concomitant]
     Dosage: 4 DAYS
  3. CORTICOSTEROIDS [Concomitant]
     Dosage: 2 WEEKS

REACTIONS (10)
  - BRONCHOPULMONARY ASPERGILLOSIS [None]
  - CYTOMEGALOVIRUS VIRAEMIA [None]
  - DRUG INEFFECTIVE [None]
  - MYOCARDIAL INFARCTION [None]
  - PNEUMONIA BACTERIAL [None]
  - RESPIRATORY FAILURE [None]
  - SEPSIS [None]
  - STAPHYLOCOCCAL BACTERAEMIA [None]
  - STEM CELL TRANSPLANT [None]
  - URINARY TRACT INFECTION PSEUDOMONAL [None]
